FAERS Safety Report 10639148 (Version 1)
Quarter: 2014Q4

REPORT INFORMATION
  Report Type: Spontaneous
  Country: US (occurrence: US)
  Receive Date: 20141208
  Receipt Date: 20141208
  Transmission Date: 20150529
  Serious: No
  Sender: FDA-Public Use
  Company Number: US-BAUSCH-SYM-2013-12872

PATIENT
  Age: 65 Year
  Sex: Female

DRUGS (2)
  1. VITAMIN E [Concomitant]
     Active Substance: .ALPHA.-TOCOPHEROL
     Indication: PRODUCT USED FOR UNKNOWN INDICATION
     Route: 061
  2. CARAC [Suspect]
     Active Substance: FLUOROURACIL
     Indication: PRECANCEROUS SKIN LESION
     Route: 061
     Dates: start: 201310

REACTIONS (2)
  - Application site irritation [Not Recovered/Not Resolved]
  - Application site pain [Not Recovered/Not Resolved]

NARRATIVE: CASE EVENT DATE: 201311
